FAERS Safety Report 23266074 (Version 5)
Quarter: 2024Q1

REPORT INFORMATION
  Report Type: Spontaneous
  Country: PT (occurrence: PT)
  Receive Date: 20231206
  Receipt Date: 20240203
  Transmission Date: 20240410
  Serious: Yes (Hospitalization, Other)
  Sender: FDA-Public Use
  Company Number: PT-HOLON-2023000264

PATIENT
  Age: 16 Year
  Sex: Male

DRUGS (6)
  1. AMBROXOL [Suspect]
     Active Substance: AMBROXOL
     Indication: Upper respiratory tract infection
     Dosage: UNK
     Route: 065
  2. AMBROXOL [Suspect]
     Active Substance: AMBROXOL
     Dosage: UNK
  3. HYDROXYZINE [Suspect]
     Active Substance: HYDROXYZINE HYDROCHLORIDE
     Indication: Toxic skin eruption
     Dosage: UNK
     Route: 065
  4. ACETAMINOPHEN [Suspect]
     Active Substance: ACETAMINOPHEN
     Indication: Upper respiratory tract infection
     Dosage: UNK
     Route: 065
  5. PHENYLEPHRINE [Suspect]
     Active Substance: PHENYLEPHRINE HYDROCHLORIDE
     Indication: Upper respiratory tract infection
     Dosage: UNK
     Route: 045
  6. PREDNISOLONE [Concomitant]
     Active Substance: PREDNISOLONE
     Indication: Toxic skin eruption
     Dosage: UNK
     Route: 065

REACTIONS (3)
  - Pityriasis rubra pilaris [Recovering/Resolving]
  - Toxic skin eruption [Not Recovered/Not Resolved]
  - Rash maculo-papular [Not Recovered/Not Resolved]
